FAERS Safety Report 5526952-4 (Version None)
Quarter: 2007Q4

REPORT INFORMATION
  Report Type: 
  Country: None (occurrence: None)
  Receive Date: 20071127
  Receipt Date: 20071119
  Transmission Date: 20080405
  Serious: Yes (Hospitalization)
  Sender: FDA-Public Use
  Company Number: FR-PFIZER INC-2007096866

PATIENT
  Sex: Female

DRUGS (8)
  1. AMLOR [Suspect]
     Indication: HYPERTENSION
     Route: 048
  2. INDAPAMIDE [Suspect]
     Indication: HYPERTENSION
     Route: 048
  3. COVERSYL [Concomitant]
  4. KARDEGIC [Concomitant]
     Route: 048
  5. HYPERIUM [Concomitant]
     Route: 048
  6. ROWASA [Concomitant]
     Route: 048
  7. XANAX [Concomitant]
     Route: 048
  8. TAHOR [Concomitant]
     Route: 048

REACTIONS (5)
  - ARRHYTHMIA SUPRAVENTRICULAR [None]
  - HYPOKALAEMIA [None]
  - MALAISE [None]
  - PALPITATIONS [None]
  - PROTEIN TOTAL INCREASED [None]
